FAERS Safety Report 9039175 (Version 1)
Quarter: 2013Q1

REPORT INFORMATION
  Report Type: Spontaneous
  Country: US (occurrence: None)
  Receive Date: 20130123
  Receipt Date: 20130123
  Transmission Date: 20140127
  Serious: Yes (Hospitalization)
  Sender: FDA-Public Use
  Company Number: None

PATIENT
  Age: 65 Year
  Sex: Male
  Weight: 110.2 kg

DRUGS (1)
  1. BACLOFEN [Suspect]
     Indication: BACK PAIN
     Route: 048
     Dates: start: 20071009, end: 20130113

REACTIONS (1)
  - Mental status changes [None]
